FAERS Safety Report 18274276 (Version 1)
Quarter: 2020Q3

REPORT INFORMATION
  Report Type: Spontaneous
  Country: US (occurrence: US)
  Receive Date: 20200916
  Receipt Date: 20200916
  Transmission Date: 20201103
  Serious: No
  Sender: FDA-Public Use
  Company Number: US-TEVA-2020-US-1827564

PATIENT
  Sex: Male

DRUGS (2)
  1. BUTALBITAL, ASPIRIN, AND CAFFEINE [Suspect]
     Active Substance: ASPIRIN\BUTALBITAL\CAFFEINE
     Indication: MIGRAINE
     Dosage: FORM STRENGTH: BUTALBITAL /ASPIRIN /CAFFEINE: 50 MG /325 MG /40 MG, START DATE: MORE THAN 25 YEARS
     Route: 065
  2. BUTALBITAL, ASPIRIN, AND CAFFEINE [Suspect]
     Active Substance: ASPIRIN\BUTALBITAL\CAFFEINE
     Dosage: FORM STRENGTH: BUTALBITAL /ASPIRIN /CAFFEINE: 50 MG /325 MG /40 MG
     Route: 065
     Dates: start: 202008

REACTIONS (2)
  - Drug ineffective [Unknown]
  - Product quality issue [Unknown]

NARRATIVE: CASE EVENT DATE: 202008
